FAERS Safety Report 16215082 (Version 2)
Quarter: 2019Q2

REPORT INFORMATION
  Report Type: Spontaneous
  Country: MD (occurrence: MD)
  Receive Date: 20190419
  Receipt Date: 20190425
  Transmission Date: 20190711
  Serious: Yes (Other)
  Sender: FDA-Public Use
  Company Number: MD-SUN PHARMACEUTICAL INDUSTRIES LTD-2019R1-205685

PATIENT
  Age: 14 Year
  Sex: Female

DRUGS (1)
  1. PREDNISONE. [Suspect]
     Active Substance: PREDNISONE
     Indication: SYSTEMIC LUPUS ERYTHEMATOSUS
     Dosage: 15 MG OR MORE PER DAY
     Route: 065

REACTIONS (5)
  - Joint dislocation [Unknown]
  - Bone erosion [Unknown]
  - Femur fracture [Unknown]
  - Osteonecrosis [Unknown]
  - Osteoporosis [Unknown]
